FAERS Safety Report 14269585 (Version 2)
Quarter: 2020Q3

REPORT INFORMATION
  Report Type: Spontaneous
  Country: US (occurrence: US)
  Receive Date: 20171211
  Receipt Date: 20200810
  Transmission Date: 20201102
  Serious: Yes (Other)
  Sender: FDA-Public Use
  Company Number: US-OTSUKA-2017_014107

PATIENT
  Sex: Male

DRUGS (9)
  1. ABILIFY [Interacting]
     Active Substance: ARIPIPRAZOLE
     Dosage: 10 MG, UNK
     Route: 065
  2. LAMICTAL [Concomitant]
     Active Substance: LAMOTRIGINE
     Indication: PRODUCT USED FOR UNKNOWN INDICATION
     Dosage: UNK
     Route: 065
  3. RISPERDAL [Interacting]
     Active Substance: RISPERIDONE
     Indication: PRODUCT USED FOR UNKNOWN INDICATION
     Dosage: UNK
     Route: 065
  4. ABILIFY [Interacting]
     Active Substance: ARIPIPRAZOLE
     Dosage: 10 MG, UNK
     Route: 065
  5. ABILIFY [Interacting]
     Active Substance: ARIPIPRAZOLE
     Dosage: 1 DF, QD (TAKING 1/3 OF A TABLET DAILY)
     Route: 065
  6. ABILIFY MAINTENA [Interacting]
     Active Substance: ARIPIPRAZOLE
     Indication: PRODUCT USED FOR UNKNOWN INDICATION
     Dosage: UNK
     Route: 065
  7. ABILIFY [Suspect]
     Active Substance: ARIPIPRAZOLE
     Indication: BIPOLAR DISORDER
     Dosage: 20 MG, UNK
     Route: 065
  8. ABILIFY [Interacting]
     Active Substance: ARIPIPRAZOLE
     Dosage: 5 MG, UNK
     Route: 065
     Dates: start: 2005
  9. ARIPIPRAZOLE. [Interacting]
     Active Substance: ARIPIPRAZOLE
     Indication: PRODUCT USED FOR UNKNOWN INDICATION
     Dosage: UNK
     Route: 065

REACTIONS (11)
  - Underdose [Unknown]
  - Drug interaction [Unknown]
  - Hallucination, auditory [Unknown]
  - Compulsive sexual behaviour [Recovered/Resolved]
  - Compulsive shopping [Recovered/Resolved]
  - Weight decreased [Unknown]
  - Food interaction [Unknown]
  - Theft [Recovered/Resolved]
  - Inability to afford medication [Unknown]
  - Weight increased [Unknown]
  - Bipolar disorder [Recovered/Resolved]
